FAERS Safety Report 5708980-9 (Version None)
Quarter: 2008Q2

REPORT INFORMATION
  Report Type: 
  Country: None (occurrence: None)
  Receive Date: 20080414
  Receipt Date: 20080414
  Transmission Date: 20081010
  Serious: Yes (Death, Life-Threatening)
  Sender: FDA-Public Use
  Company Number: None

PATIENT
  Sex: Male
  Weight: 90.7194 kg

DRUGS (1)
  1. LIQUAEMIN SODIUM [Suspect]
     Indication: THROMBOSIS
     Dosage: TWICE DAILY SQ
     Route: 058
     Dates: start: 20080227, end: 20080312

REACTIONS (3)
  - DYSPNOEA [None]
  - HEART RATE ABNORMAL [None]
  - HYPOTENSION [None]
